FAERS Safety Report 16841000 (Version 1)
Quarter: 2019Q3

REPORT INFORMATION
  Report Type: Report from Study
  Country: US (occurrence: US)
  Receive Date: 20190923
  Receipt Date: 20190923
  Transmission Date: 20191005
  Serious: Yes (Other)
  Sender: FDA-Public Use
  Company Number: PHEH2019US038734

PATIENT
  Sex: Female
  Weight: 66.21 kg

DRUGS (2)
  1. LETAIRIS [Concomitant]
     Active Substance: AMBRISENTAN
     Indication: PRODUCT USED FOR UNKNOWN INDICATION
     Route: 065
  2. TREPROSTINIL. [Suspect]
     Active Substance: TREPROSTINIL
     Indication: PULMONARY ARTERIAL HYPERTENSION
     Dosage: 25 NG/KG/MIN, CONTINOUS
     Route: 042
     Dates: start: 20190708

REACTIONS (3)
  - Drug ineffective [Unknown]
  - Choking [Recovering/Resolving]
  - Cough [Recovering/Resolving]
